FAERS Safety Report 16529277 (Version 1)
Quarter: 2019Q3

REPORT INFORMATION
  Report Type: Spontaneous
  Country: US (occurrence: US)
  Receive Date: 20190704
  Receipt Date: 20190704
  Transmission Date: 20191004
  Serious: No
  Sender: FDA-Public Use
  Company Number: US-GW PHARMA-201904USGW1113

PATIENT

DRUGS (17)
  1. EPIDIOLEX [Suspect]
     Active Substance: CANNABIDIOL
     Dosage: 250 MILLIGRAM, BID
     Route: 048
     Dates: start: 20190523
  2. BACLOFEN. [Concomitant]
     Active Substance: BACLOFEN
     Indication: PRODUCT USED FOR UNKNOWN INDICATION
     Dosage: 2 DOSAGE FORM, TID (2 TABLET EACH MORNING, EVENING AND AT BEDTIME)
     Route: 048
     Dates: start: 20190328
  3. DIASTAT ACUDIAL [Concomitant]
     Active Substance: DIAZEPAM
     Indication: PRODUCT USED FOR UNKNOWN INDICATION
     Dosage: 15 MILLIGRAM, PRN
     Route: 054
     Dates: start: 20190328
  4. FLONASE [Concomitant]
     Active Substance: FLUTICASONE PROPIONATE
     Indication: HYPERSENSITIVITY
     Dosage: 100 MICROGRAM, QD (1 SPRAY (50 MCG) IN EACH NOSTRIL ONCE DAILY)
     Route: 045
  5. PREVACID [Concomitant]
     Active Substance: LANSOPRAZOLE
     Indication: PRODUCT USED FOR UNKNOWN INDICATION
     Dosage: UNK
     Route: 048
  6. SINGULAIR [Concomitant]
     Active Substance: MONTELUKAST SODIUM
     Indication: PRODUCT USED FOR UNKNOWN INDICATION
     Dosage: CHEW 1 DOSAGE FORM, QD
     Route: 048
  7. SCOPOLAMINE [HYOSCINE] [Concomitant]
     Active Substance: SCOPOLAMINE
     Indication: PRODUCT USED FOR UNKNOWN INDICATION
     Dosage: 1 PATCH BEHIND 1 EAR AT LEAST 4 HR BEFORE EFFECT, REAPPLY EVERY 3 DAYS PRN
     Route: 062
     Dates: start: 20190328
  8. ZYRTEC [Concomitant]
     Active Substance: CETIRIZINE HYDROCHLORIDE
     Indication: PRODUCT USED FOR UNKNOWN INDICATION
     Dosage: 10 MILLIGRAM, QD
     Route: 048
  9. MELATONIN [Concomitant]
     Active Substance: MELATONIN
     Indication: PRODUCT USED FOR UNKNOWN INDICATION
     Dosage: 5 MILLIGRAM, QD
     Route: 048
  10. TUMS [Concomitant]
     Active Substance: CALCIUM CARBONATE
     Indication: PRODUCT USED FOR UNKNOWN INDICATION
     Dosage: UNK
     Route: 048
  11. KLONOPIN [Concomitant]
     Active Substance: CLONAZEPAM
     Indication: PRODUCT USED FOR UNKNOWN INDICATION
     Dosage: 1 DOSAGE FORM, QD (STRENDTH 1 MG)
     Route: 048
     Dates: start: 20190328
  12. KLONOPIN [Concomitant]
     Active Substance: CLONAZEPAM
     Dosage: 2 MILLIGRAM, TID (STRENGTH 2 MG, 1 TABLET (2MG) TID)
     Route: 048
     Dates: start: 20190328
  13. VIMPAT [Concomitant]
     Active Substance: LACOSAMIDE
     Indication: PRODUCT USED FOR UNKNOWN INDICATION
     Dosage: 200 MILLIGRAM, BID (STRENGTH 200 MG)
     Route: 048
     Dates: start: 20190328
  14. EPIDIOLEX [Suspect]
     Active Substance: CANNABIDIOL
     Indication: LENNOX-GASTAUT SYNDROME
     Dosage: 250 MILLIGRAM, BID
     Route: 048
     Dates: start: 20190227, end: 201905
  15. CLONAZEPAM. [Concomitant]
     Active Substance: CLONAZEPAM
     Indication: PRODUCT USED FOR UNKNOWN INDICATION
     Dosage: 7 MILLILITER, QD (2 ML AT 7AM, 3 ML AT 2 PM AND 2 ML AT 8PM)
     Route: 048
  16. MULTIVITAMINS PLUS IRON [Concomitant]
     Active Substance: IRON\VITAMINS
     Indication: PRODUCT USED FOR UNKNOWN INDICATION
     Dosage: UNK
     Route: 048
  17. VIMPAT [Concomitant]
     Active Substance: LACOSAMIDE
     Dosage: 1.5 DOSAGE FORM, BID (50MG AND 25MG))
     Route: 048
     Dates: start: 20190328

REACTIONS (1)
  - Frequent bowel movements [Recovered/Resolved]

NARRATIVE: CASE EVENT DATE: 20190418
